FAERS Safety Report 13433422 (Version 1)
Quarter: 2017Q2

REPORT INFORMATION
  Report Type: Spontaneous
  Country: GB (occurrence: GB)
  Receive Date: 20170412
  Receipt Date: 20170412
  Transmission Date: 20170830
  Serious: Yes (Other)
  Sender: FDA-Public Use
  Company Number: GB-TEVA-756569ACC

PATIENT
  Age: 63 Year
  Sex: Female

DRUGS (2)
  1. COLGATE DURAPHAT [Interacting]
     Active Substance: SODIUM FLUORIDE
     Dosage: 5000PPM
  2. WARFARIN [Suspect]
     Active Substance: WARFARIN

REACTIONS (2)
  - International normalised ratio decreased [Not Recovered/Not Resolved]
  - Drug interaction [Not Recovered/Not Resolved]

NARRATIVE: CASE EVENT DATE: 201609
